FAERS Safety Report 6160261-8 (Version None)
Quarter: 2009Q2

REPORT INFORMATION
  Report Type: 
  Country: None (occurrence: None)
  Receive Date: 20090420
  Receipt Date: 20090414
  Transmission Date: 20091009
  Serious: Yes (Hospitalization)
  Sender: FDA-Public Use
  Company Number: B0570491A

PATIENT
  Age: 45 Year
  Sex: Female

DRUGS (1)
  1. AROPAX [Suspect]
     Indication: DEPRESSION
     Route: 065

REACTIONS (5)
  - CRYING [None]
  - DRUG INEFFECTIVE [None]
  - HEADACHE [None]
  - NIGHTMARE [None]
  - TREMOR [None]
